FAERS Safety Report 26154740 (Version 1)
Quarter: 2025Q4

REPORT INFORMATION
  Report Type: Spontaneous
  Country: CN (occurrence: CN)
  Receive Date: 20251215
  Receipt Date: 20251215
  Transmission Date: 20260118
  Serious: Yes (Hospitalization, Other)
  Sender: EPIC PHARM
  Company Number: CN-EPICPHARMA-CN-2025EPCLIT01261

PATIENT
  Age: 62 Year
  Sex: Female

DRUGS (2)
  1. EPIRUBICIN HYDROCHLORIDE [Suspect]
     Active Substance: EPIRUBICIN HYDROCHLORIDE
     Indication: Invasive ductal breast carcinoma
     Route: 065
     Dates: start: 2022
  2. CYCLOPHOSPHAMIDE [Suspect]
     Active Substance: CYCLOPHOSPHAMIDE
     Indication: Invasive ductal breast carcinoma
     Route: 065
     Dates: start: 2022, end: 2023

REACTIONS (1)
  - T-cell type acute leukaemia [Recovered/Resolved]

NARRATIVE: CASE EVENT DATE: 20250101
